FAERS Safety Report 10466264 (Version 1)
Quarter: 2014Q3

REPORT INFORMATION
  Report Type: Spontaneous
  Country: US (occurrence: None)
  Receive Date: 20140919
  Receipt Date: 20140919
  Transmission Date: 20150326
  Serious: No
  Sender: FDA-Public Use
  Company Number: None

PATIENT
  Age: 68 Year
  Sex: Female

DRUGS (1)
  1. HUMIRA [Suspect]
     Active Substance: ADALIMUMAB
     Indication: CROHN^S DISEASE
     Dosage: 160MG DAY 1, 80MG DAY 15, 160MG DAY 1, 80MG DAY15, SQ
     Route: 058
     Dates: start: 20140826, end: 20140907

REACTIONS (4)
  - Pyrexia [None]
  - Chromaturia [None]
  - Malaise [None]
  - Rash [None]

NARRATIVE: CASE EVENT DATE: 20140908
